FAERS Safety Report 8613013-0 (Version None)
Quarter: 2012Q3

REPORT INFORMATION
  Report Type: 
  Country: None (occurrence: None)
  Receive Date: 20120822
  Receipt Date: 20120813
  Transmission Date: 20120928
  Serious: Yes (Other)
  Sender: FDA-Public Use
  Company Number: JP-GILEAD-2012-0059983

PATIENT
  Sex: Male

DRUGS (8)
  1. VIRAMUNE [Concomitant]
     Indication: HIV INFECTION
     Dosage: UNK
     Dates: start: 19991129
  2. EMTRICITABINE/TENOFOVIR DISOPROXIL FUMARATE [Suspect]
     Indication: HIV INFECTION
     Dosage: 1 DF, QD
     Route: 048
     Dates: start: 20051026, end: 20120301
  3. URINORM [Concomitant]
     Dosage: UNK
     Dates: start: 20110401
  4. RIMATIL [Concomitant]
     Dosage: UNK
     Dates: start: 20110121
  5. TENORMIN [Concomitant]
     Dosage: UNK
     Dates: start: 20110401
  6. NORVASC [Suspect]
     Dosage: UNK
     Dates: start: 20110401
  7. BEZATOL SR [Concomitant]
     Dosage: UNK
     Dates: start: 20110401
  8. DIOVAN [Concomitant]
     Dosage: UNK
     Dates: start: 20110401

REACTIONS (2)
  - RHEUMATOID ARTHRITIS [None]
  - NEPHROLITHIASIS [None]
